FAERS Safety Report 6015052-5 (Version None)
Quarter: 2008Q4

REPORT INFORMATION
  Report Type: 
  Country: None (occurrence: None)
  Receive Date: 20081222
  Receipt Date: 20081218
  Transmission Date: 20090506
  Serious: Yes (Death, Hospitalization)
  Sender: FDA-Public Use
  Company Number: FI-JNJFOC-20081201737

PATIENT
  Sex: Male

DRUGS (11)
  1. HALOPERIDOL [Suspect]
     Indication: SCHIZOPHRENIA
     Route: 065
  2. ABILIFY [Suspect]
     Indication: PSYCHOTIC DISORDER
     Route: 030
  3. LEPONEX [Suspect]
     Indication: PSYCHOTIC DISORDER
     Route: 048
  4. ZYPREXA [Suspect]
     Indication: DRUG USE FOR UNKNOWN INDICATION
     Route: 048
  5. CISARDINOL-ACUTARD [Suspect]
     Indication: DRUG USE FOR UNKNOWN INDICATION
     Route: 030
  6. ZYPREXA [Suspect]
     Route: 030
  7. TENOX [Concomitant]
     Route: 065
  8. ATIVAN [Concomitant]
     Dosage: AS NEEDED
     Route: 030
  9. PROPAL [Concomitant]
     Route: 065
  10. THYROXIN [Concomitant]
     Indication: HYPOTHYROIDISM
     Route: 048
  11. OMEPRAZOLE [Concomitant]
     Route: 048

REACTIONS (4)
  - CARDIOMYOPATHY [None]
  - DRUG LEVEL DECREASED [None]
  - LONG QT SYNDROME [None]
  - MYOCARDIAL FIBROSIS [None]
